FAERS Safety Report 8841736 (Version 1)
Quarter: 2012Q4

REPORT INFORMATION
  Report Type: Spontaneous
  Country: US (occurrence: None)
  Receive Date: 20121011
  Receipt Date: 20121011
  Transmission Date: 20130627
  Serious: Yes (Hospitalization)
  Sender: FDA-Public Use
  Company Number: 2012-378

PATIENT
  Age: 66 Year
  Sex: Female
  Weight: 79.8 kg

DRUGS (6)
  1. PRIALT [Suspect]
     Indication: DIABETIC NEUROPATHY
     Route: 037
     Dates: start: 20120523, end: 20120611
  2. PRIALT [Suspect]
     Indication: DIABETIC NEUROPATHY
     Dosage: once/hour
     Route: 037
     Dates: start: 20120611, end: 20120622
  3. PRIALT [Suspect]
     Indication: DIABETIC NEUROPATHY
     Dosage: once/hour
     Route: 037
     Dates: start: 20120622, end: 20120625
  4. PRIALT [Suspect]
     Indication: DIABETIC NEUROPATHY
     Dosage: once/hour
     Route: 037
     Dates: start: 20120625, end: 20120629
  5. PRIALT [Suspect]
     Indication: DIABETIC NEUROPATHY
     Dosage: 0.00325 mcg, once/hour
     Route: 037
     Dates: start: 20120629, end: 201207
  6. PRIALT [Suspect]
     Indication: DIABETIC NEUROPATHY
     Route: 037
     Dates: start: 201207

REACTIONS (3)
  - Upper gastrointestinal haemorrhage [None]
  - Pyrexia [None]
  - Mental status changes [None]
